FAERS Safety Report 4695422-8 (Version None)
Quarter: 2005Q2

REPORT INFORMATION
  Report Type: 
  Country: None (occurrence: None)
  Receive Date: 20050621
  Receipt Date: 20050504
  Transmission Date: 20051028
  Serious: Yes (Other)
  Sender: FDA-Public Use
  Company Number: 200511165EU

PATIENT
  Age: 34 Year
  Sex: Female
  Weight: 65 kg

DRUGS (7)
  1. DOCETAXEL [Suspect]
     Indication: BREAST CANCER
     Route: 042
     Dates: start: 20030107, end: 20030422
  2. DOXORUBICIN [Suspect]
     Indication: BREAST CANCER
     Route: 042
     Dates: start: 20030107, end: 20030422
  3. CYCLOPHOSPHAMIDE [Suspect]
     Indication: BREAST CANCER
     Route: 042
     Dates: start: 20030107, end: 20030422
  4. TAMOXIFEN [Concomitant]
     Indication: BREAST CANCER
     Dates: start: 20030519
  5. RADIOTHERAPY [Concomitant]
     Indication: BREAST CANCER
  6. CIPROFLOXACIN HCL [Concomitant]
     Indication: PROPHYLAXIS
  7. GRANOCYTE [Concomitant]
     Indication: PROPHYLAXIS
     Route: 058

REACTIONS (11)
  - ACUTE MYELOID LEUKAEMIA [None]
  - DYSPNOEA [None]
  - EPSTEIN-BARR VIRUS ANTIBODY POSITIVE [None]
  - FATIGUE [None]
  - FEBRILE NEUTROPENIA [None]
  - HAEMOGLOBIN DECREASED [None]
  - HYDROCEPHALUS [None]
  - PLATELET COUNT DECREASED [None]
  - RED BLOOD CELL COUNT DECREASED [None]
  - STOMATITIS [None]
  - WHITE BLOOD CELL COUNT DECREASED [None]
